FAERS Safety Report 7628517-7 (Version None)
Quarter: 2011Q3

REPORT INFORMATION
  Report Type: 
  Country: None (occurrence: None)
  Receive Date: 20110711
  Receipt Date: 20110701
  Transmission Date: 20111222
  Serious: Yes (Other)
  Sender: FDA-Public Use
  Company Number: 2011029124

PATIENT
  Age: 68 Year
  Sex: Female
  Weight: 72.5755 kg

DRUGS (9)
  1. SPIRIVA [Concomitant]
  2. XOPENEX [Concomitant]
  3. HIZENTRA [Suspect]
     Indication: HYPOGAMMAGLOBULINAEMIA
     Dosage: (8 G 1X/WEEK, 8 G (40 ML) VIA 3 SITES OVER 72 MINUTES SUBCUTANEOUS),
     Route: 058
     Dates: start: 20101004
  4. PREDNISONE [Concomitant]
  5. WELLBUTRIN [Concomitant]
  6. FLONASE [Concomitant]
  7. SYNTHROID [Concomitant]
  8. ADVAIR DISKUS 100/50 [Concomitant]
  9. RESTORIL [Concomitant]

REACTIONS (1)
  - RESPIRATORY TRACT INFECTION [None]
